FAERS Safety Report 23454399 (Version 2)
Quarter: 2024Q1

REPORT INFORMATION
  Report Type: Other
  Country: CA (occurrence: CA)
  Receive Date: 20240130
  Receipt Date: 20240213
  Transmission Date: 20240409
  Serious: Yes (Hospitalization)
  Sender: FDA-Public Use
  Company Number: CA-INTERCEPT-PM2022001124

PATIENT
  Age: 80 Year
  Sex: Female

DRUGS (4)
  1. OCALIVA [Suspect]
     Active Substance: OBETICHOLIC ACID
     Indication: Primary biliary cholangitis
     Dosage: 5 MG, QD
     Route: 048
     Dates: start: 20200130
  2. OCALIVA [Suspect]
     Active Substance: OBETICHOLIC ACID
     Dosage: 10 MG, QD
     Route: 048
     Dates: start: 20230515
  3. URSODIOL [Concomitant]
     Active Substance: URSODIOL
     Dosage: UNK
  4. URSODIOL [Concomitant]
     Active Substance: URSODIOL
     Dosage: UNK

REACTIONS (6)
  - Abdominal mass [Unknown]
  - Abdominal operation [Unknown]
  - Gamma-glutamyltransferase increased [Unknown]
  - Blood alkaline phosphatase increased [Unknown]
  - Blood bilirubin increased [Unknown]
  - Drug ineffective [Unknown]

NARRATIVE: CASE EVENT DATE: 20220420
